FAERS Safety Report 7116071-8 (Version None)
Quarter: 2010Q4

REPORT INFORMATION
  Report Type: 
  Country: None (occurrence: None)
  Receive Date: 20101122
  Receipt Date: 20101110
  Transmission Date: 20110411
  Serious: Yes (Hospitalization)
  Sender: FDA-Public Use
  Company Number: US-CELGENEUS-163-50794-10111457

PATIENT
  Sex: Male
  Weight: 132 kg

DRUGS (14)
  1. VIDAZA [Suspect]
     Route: 065
     Dates: start: 20101021
  2. G-CSF [Suspect]
     Route: 065
     Dates: start: 20101018, end: 20101021
  3. PLERIXAFOR [Suspect]
     Route: 065
     Dates: start: 20101020, end: 20101021
  4. ANDROGEL [Concomitant]
     Route: 065
  5. ALPRAZOLAM [Concomitant]
     Route: 048
  6. CALCIUM [Concomitant]
     Route: 065
  7. VITAMIN D [Concomitant]
     Route: 065
  8. SIMVASTATIN [Concomitant]
     Route: 065
  9. LEXAPRO [Concomitant]
     Route: 048
  10. NORVASC [Concomitant]
     Route: 048
  11. MICARDIS [Concomitant]
     Dosage: 80/25
     Route: 048
  12. VANCOMYCIN [Concomitant]
     Route: 065
  13. CEFEPIME [Concomitant]
     Route: 065
  14. SOLU-MEDROL [Concomitant]
     Route: 065

REACTIONS (3)
  - CHEST PAIN [None]
  - DYSPNOEA [None]
  - LEUKOCYTOSIS [None]
